FAERS Safety Report 7342158-0 (Version None)
Quarter: 2011Q1

REPORT INFORMATION
  Report Type: 
  Country: None (occurrence: None)
  Receive Date: 20110309
  Receipt Date: 20101026
  Transmission Date: 20110831
  Serious: Yes (Hospitalization)
  Sender: FDA-Public Use
  Company Number: JP-ASTRAZENECA-2011SE12502

PATIENT
  Age: 52 Year
  Sex: Male

DRUGS (6)
  1. PREDNISOLONE [Concomitant]
  2. MEROPEN [Suspect]
     Indication: PNEUMONIA FUNGAL
     Route: 042
  3. FUNGUARD [Concomitant]
  4. MEROPEN [Suspect]
     Indication: PNEUMONIA BACTERIAL
     Route: 042
  5. MEROPEN [Suspect]
     Indication: INTERSTITIAL LUNG DISEASE
     Route: 042
  6. VANCOMYCIN HYDROCHLORIDE [Concomitant]

REACTIONS (1)
  - OCULOMUCOCUTANEOUS SYNDROME [None]
